FAERS Safety Report 4276697-6 (Version None)
Quarter: 2004Q1

REPORT INFORMATION
  Report Type: 
  Country: None (occurrence: None)
  Receive Date: 20040120
  Receipt Date: 20040106
  Transmission Date: 20041129
  Serious: Yes (Hospitalization)
  Sender: FDA-Public Use
  Company Number: JP-SHR-04-019285

PATIENT
  Age: 45 Year
  Sex: Male

DRUGS (1)
  1. PROSCOPE 300(IOPROMIDE) INFUSION [Suspect]
     Indication: COMPUTERISED TOMOGRAM
     Dosage: 95 ML, 1 DOSE, INTRAVENOUS
     Route: 042
     Dates: start: 20030123, end: 20030123

REACTIONS (7)
  - BRADYCARDIA [None]
  - DYSPNOEA [None]
  - ELECTROCARDIOGRAM ST SEGMENT DEPRESSION [None]
  - FACE OEDEMA [None]
  - MALAISE [None]
  - OXYGEN SATURATION DECREASED [None]
  - SHOCK [None]
